FAERS Safety Report 5376194-0 (Version None)
Quarter: 2007Q2

REPORT INFORMATION
  Report Type: 
  Country: None (occurrence: None)
  Receive Date: 20070628
  Receipt Date: 20070615
  Transmission Date: 20071010
  Serious: Yes (Death)
  Sender: FDA-Public Use
  Company Number: 157688ISR

PATIENT
  Age: 69 Year
  Sex: Female

DRUGS (6)
  1. VINCRISTINE SULFATE [Suspect]
     Dosage: 1.5 MG (PER CYCLE INTRAVENOUS (NOT OTHERWISE SPECIFIED)
     Route: 042
     Dates: start: 20070413, end: 20070420
  2. DASATINIB (SPRYCEL) [Suspect]
     Dosage: 100 MG ??
     Dates: start: 20070412, end: 20070425
  3. CYCLOPHOSPHAMIDE [Suspect]
     Dosage: 1.2 MG (PER CYCLE) INTRAVENOUS (NOT OTHERWISE SPECIFIED)
     Route: 042
     Dates: start: 20070413, end: 20070420
  4. CLOMIPRAMINE HYDROCHLORIDE [Suspect]
     Dosage: 25 MG (25 MG, 1 IN 1 D) INTRAVENOUS (NOT OTHERWISE SPECIFIED)
     Route: 042
     Dates: start: 20070417, end: 20070425
  5. IDARUBICIN HCL [Suspect]
     Dosage: 1.2 MG (1 IN 1 D)
     Dates: start: 20070414, end: 20070416
  6. MESNA [Concomitant]

REACTIONS (10)
  - ASPERGILLOSIS [None]
  - CARDIAC VENTRICULAR DISORDER [None]
  - CEREBROVASCULAR ACCIDENT [None]
  - EJECTION FRACTION DECREASED [None]
  - ELECTROCARDIOGRAM QT PROLONGED [None]
  - FEBRILE BONE MARROW APLASIA [None]
  - RESPIRATORY FAILURE [None]
  - SUPRAVENTRICULAR EXTRASYSTOLES [None]
  - TACHYARRHYTHMIA [None]
  - VENTRICULAR EXTRASYSTOLES [None]
